FAERS Safety Report 9453217 (Version 5)
Quarter: 2014Q1

REPORT INFORMATION
  Report Type: Spontaneous
  Country: US (occurrence: US)
  Receive Date: 20130812
  Receipt Date: 20140131
  Transmission Date: 20141002
  Serious: Yes (Other)
  Sender: FDA-Public Use
  Company Number: US-PFIZER INC-2013232084

PATIENT
  Sex: Female

DRUGS (3)
  1. PROTONIX [Suspect]
     Dosage: UNK
  2. PREMARIN [Suspect]
     Dosage: UNK
  3. CELEBREX [Suspect]
     Dosage: UNK

REACTIONS (7)
  - Hypoacusis [Unknown]
  - Pneumonia [Unknown]
  - Malaise [Unknown]
  - Hypersensitivity [Unknown]
  - Nasopharyngitis [Unknown]
  - Thinking abnormal [Unknown]
  - Dyspepsia [Unknown]
